FAERS Safety Report 17103275 (Version 2)
Quarter: 2020Q4

REPORT INFORMATION
  Report Type: Spontaneous
  Country: US (occurrence: US)
  Receive Date: 20191203
  Receipt Date: 20201019
  Transmission Date: 20210113
  Serious: Yes (Death, Life-Threatening, Other)
  Sender: FDA-Public Use
  Company Number: US-AMGEN-USASP2019199632

PATIENT

DRUGS (6)
  1. DEXAMETHASONE. [Concomitant]
     Active Substance: DEXAMETHASONE
     Dosage: UNK
  2. SELINEXOR [Suspect]
     Active Substance: SELINEXOR
     Indication: ACUTE MYELOID LEUKAEMIA
     Dosage: 60 MILLIGRAM, QD, ON DAYS 1,5,10 AND 12
     Route: 048
  3. CYTARABINE. [Suspect]
     Active Substance: CYTARABINE
     Indication: ACUTE MYELOID LEUKAEMIA
     Dosage: 2000 MILLIGRAM/SQ. METER, QD, ON DAYS 4-8
     Route: 042
  4. CLADRIBINE. [Suspect]
     Active Substance: CLADRIBINE
     Indication: ACUTE MYELOID LEUKAEMIA
     Dosage: 5 MILLIGRAM/SQ. METER, QD
     Route: 042
  5. ONDANSETRON [Concomitant]
     Active Substance: ONDANSETRON
     Indication: PROPHYLAXIS
     Dosage: 8 MILLIGRAM, STARTING BEFORE THE FIRST DOSE OF SELINEXOR AND CONTINUED TWO TO THREE TIMES A DAY AS N
     Route: 065
  6. FILGRASTIM [Suspect]
     Active Substance: FILGRASTIM
     Indication: ACUTE MYELOID LEUKAEMIA
     Dosage: 300 MICROGRAM, QD, ON DAYS THREE TO EIGHT
     Route: 058

REACTIONS (28)
  - Hyperglycaemia [Unknown]
  - Hypoxia [Unknown]
  - Alanine aminotransferase increased [Unknown]
  - Febrile neutropenia [Unknown]
  - Haematuria [Unknown]
  - White blood cell count decreased [Unknown]
  - Neutrophil count decreased [Unknown]
  - Death [Fatal]
  - Hypophosphataemia [Unknown]
  - Hypokalaemia [Unknown]
  - Pneumonia [Unknown]
  - Thrombocytopenia [Unknown]
  - Skin infection [Unknown]
  - Anaemia [Unknown]
  - Sepsis [Unknown]
  - Hypertension [Unknown]
  - Diarrhoea [Unknown]
  - Infection [Unknown]
  - Oral candidiasis [Unknown]
  - Lymphocyte count decreased [Unknown]
  - Hyponatraemia [Unknown]
  - Oedema peripheral [Unknown]
  - Colitis [Unknown]
  - Pancreatitis [Unknown]
  - Nausea [Unknown]
  - Respiratory failure [Unknown]
  - Device related infection [Unknown]
  - Gastrointestinal toxicity [Unknown]
